FAERS Safety Report 5220176-6 (Version None)
Quarter: 2007Q1

REPORT INFORMATION
  Report Type: 
  Country: None (occurrence: None)
  Receive Date: 20061201
  Receipt Date: 20061002
  Transmission Date: 20070707
  Serious: Yes (Hospitalization)
  Sender: FDA-Public Use
  Company Number: PHEH2006US11616

PATIENT
  Age: 43 Year
  Sex: Female
  Weight: 54.4 kg

DRUGS (3)
  1. LAMISIL [Suspect]
     Dosage: ORAL
     Route: 048
     Dates: start: 20060710, end: 20060901
  2. SYNTHROID [Concomitant]
  3. CONTRACEPTIVES UNS (CONTRACEPTIVES UNS) [Concomitant]

REACTIONS (3)
  - ANAPHYLACTIC REACTION [None]
  - ARTHRALGIA [None]
  - ARTHRITIS [None]
